FAERS Safety Report 5694351-0 (Version None)
Quarter: 2008Q2

REPORT INFORMATION
  Report Type: 
  Country: None (occurrence: None)
  Receive Date: 20080402
  Receipt Date: 20080319
  Transmission Date: 20081010
  Serious: Yes (Hospitalization)
  Sender: FDA-Public Use
  Company Number: DSA_31522_2008

PATIENT
  Sex: Female

DRUGS (5)
  1. LORAZEPAM [Suspect]
     Dosage: (ORAL)
     Route: 048
     Dates: start: 20080227, end: 20080227
  2. TREVILOR (TREVILOR - VENLAFAXINE HYDROCHLORIDE) (NOT SPECIFIED) [Suspect]
     Dosage: (30 DF 1X ORAL)
     Route: 048
     Dates: start: 20080227, end: 20080227
  3. STILNOX /00914901/ (STILNOX - ZOLPIDEM) [Suspect]
     Dosage: (5 DF 1X ORAL)
     Route: 048
     Dates: start: 20080227, end: 20080227
  4. SEROQUEL [Suspect]
     Dosage: (ORAL)
     Route: 048
     Dates: start: 20080227, end: 20080227
  5. TRUXAL /00012102/ (TRUXAL - CHLORPROTHIXENE HYDROCHLORIDE) (NOT SPECIF [Suspect]
     Dosage: (ORAL)
     Route: 048
     Dates: start: 20080227, end: 20080227

REACTIONS (3)
  - BRADYCARDIA [None]
  - MULTIPLE DRUG OVERDOSE INTENTIONAL [None]
  - SUICIDE ATTEMPT [None]
